FAERS Safety Report 8592280-6 (Version None)
Quarter: 2012Q3

REPORT INFORMATION
  Report Type: 
  Country: None (occurrence: None)
  Receive Date: 20120814
  Receipt Date: 20120807
  Transmission Date: 20120928
  Serious: Yes (Hospitalization)
  Sender: FDA-Public Use
  Company Number: JP-ASTRAZENECA-2012SE54224

PATIENT
  Age: 48 Year
  Sex: Female

DRUGS (3)
  1. CANDESARTAN CILEXETIL [Suspect]
     Indication: HYPERTENSION
     Route: 048
     Dates: end: 20120701
  2. HERBAL PREPARATION [Concomitant]
     Route: 065
  3. FERROUS CITRATE [Concomitant]
     Route: 048

REACTIONS (1)
  - ORGANISING PNEUMONIA [None]
